FAERS Safety Report 4534556-5 (Version None)
Quarter: 2004Q4

REPORT INFORMATION
  Report Type: 
  Country: None (occurrence: None)
  Receive Date: 20041214
  Receipt Date: 20041020
  Transmission Date: 20050328
  Serious: No
  Sender: FDA-Public Use
  Company Number: 2004240767US

PATIENT
  Age: 45 Year
  Sex: Female
  Weight: 61.2 kg

DRUGS (1)
  1. BEXTRA [Suspect]
     Dates: start: 20041001

REACTIONS (5)
  - ECCHYMOSIS [None]
  - HAEMORRHAGE [None]
  - PRURITUS [None]
  - RASH [None]
  - WEIGHT DECREASED [None]
